FAERS Safety Report 4459383-9 (Version None)
Quarter: 2004Q3

REPORT INFORMATION
  Report Type: 
  Country: None (occurrence: None)
  Receive Date: 20040927
  Receipt Date: 20040922
  Transmission Date: 20050211
  Serious: Yes (Death)
  Sender: FDA-Public Use
  Company Number: PHBS2004JP12695

PATIENT
  Age: 50 Year
  Sex: Female

DRUGS (3)
  1. VOLTAREN [Suspect]
     Indication: PYREXIA
     Dosage: 12.5 MG, ONCE/SINGLE
     Route: 054
     Dates: start: 20040810, end: 20040810
  2. HEPARIN [Suspect]
     Dosage: 1200 DF/DAY
     Route: 042
     Dates: start: 20040804, end: 20040812
  3. ALTAT [Concomitant]
     Dosage: .5 UNK, UNK
     Route: 065
     Dates: start: 20040810

REACTIONS (2)
  - DEATH [None]
  - PLATELET COUNT DECREASED [None]
